FAERS Safety Report 4498349-X (Version None)
Quarter: 2004Q4

REPORT INFORMATION
  Report Type: 
  Country: None (occurrence: None)
  Receive Date: 20041104
  Receipt Date: 20041022
  Transmission Date: 20050328
  Serious: Yes (Hospitalization)
  Sender: FDA-Public Use
  Company Number: 2004-BP-05961NB

PATIENT
  Age: 65 Year
  Sex: Male

DRUGS (7)
  1. MICARDIS [Suspect]
     Indication: HYPERTENSION
     Dosage: 1 ANZ
     Route: 048
     Dates: end: 20040716
  2. FENOFIBRATE [Suspect]
     Indication: HYPERLIPIDAEMIA
     Dosage: 1 ANZ
     Route: 048
     Dates: end: 20040716
  3. SELBEX (TEPRENONE) [Concomitant]
  4. UROSOSAN (URSODEOXYCHOLIC ACID) [Concomitant]
  5. INDERAL [Concomitant]
  6. MATRIX (INDAPAMIDE) [Concomitant]
  7. NIZATIDINE [Concomitant]

REACTIONS (2)
  - HEPATIC FUNCTION ABNORMAL [None]
  - HEPATIC STEATOSIS [None]
